FAERS Safety Report 24875065 (Version 1)
Quarter: 2025Q1

REPORT INFORMATION
  Report Type: Spontaneous
  Country: FR (occurrence: FR)
  Receive Date: 20250122
  Receipt Date: 20250122
  Transmission Date: 20250409
  Serious: Yes (Hospitalization, Other)
  Sender: B BRAUN
  Company Number: FR-B.Braun Medical Inc.-2169548

PATIENT
  Age: 93 Year
  Sex: Female
  Weight: 54.3 kg

DRUGS (2)
  1. METRONIDAZOLE [Suspect]
     Active Substance: METRONIDAZOLE
     Indication: Colitis
  2. CEFTRIAXONE SODIUM [Suspect]
     Active Substance: CEFTRIAXONE SODIUM

REACTIONS (5)
  - Hallucinations, mixed [Recovering/Resolving]
  - Altered state of consciousness [Recovering/Resolving]
  - Myoclonus [Recovering/Resolving]
  - Dysarthria [Recovering/Resolving]
  - Tremor [Recovering/Resolving]
